FAERS Safety Report 26049566 (Version 1)
Quarter: 2025Q4

REPORT INFORMATION
  Report Type: Spontaneous
  Country: US (occurrence: US)
  Receive Date: 20251115
  Receipt Date: 20251115
  Transmission Date: 20260117
  Serious: Yes (Other)
  Sender: SANOFI AVENTIS
  Company Number: US-SA-2025SA340284

PATIENT
  Age: 76 Year
  Sex: Female

DRUGS (1)
  1. DUPIXENT [Suspect]
     Active Substance: DUPILUMAB
     Indication: Dermatitis atopic
     Dosage: 300 MG, QOW; ROUTE : SELF INJECTION
     Dates: start: 202507

REACTIONS (3)
  - Chest injury [Unknown]
  - Fall [Unknown]
  - Contusion [Unknown]

NARRATIVE: CASE EVENT DATE: 20250101
